FAERS Safety Report 23510590 (Version 1)
Quarter: 2024Q1

REPORT INFORMATION
  Report Type: Spontaneous
  Country: US (occurrence: US)
  Receive Date: 20240211
  Receipt Date: 20240211
  Transmission Date: 20240410
  Serious: No
  Sender: FDA-Public Use
  Company Number: US-AIMMUNE THERAPEUTICS, INC.-2023AIMT01231

PATIENT

DRUGS (5)
  1. PALFORZIA [Suspect]
     Active Substance: PEANUT
     Indication: Food allergy
     Dosage: IDE(0.5MG-6MG), ONCE
     Route: 048
     Dates: start: 20230626, end: 20230626
  2. PALFORZIA [Suspect]
     Active Substance: PEANUT
     Dosage: 200 MG, 1X/DAY
     Route: 048
     Dates: start: 20231023, end: 20231102
  3. PALFORZIA [Suspect]
     Active Substance: PEANUT
     Dosage: 200 MG, ONCE, LAST DOSE PRIOR EVENT
     Route: 048
     Dates: start: 20231102, end: 20231102
  4. PALFORZIA [Suspect]
     Active Substance: PEANUT
     Dosage: 100 MG, 1X/DAY, DOSE DECREASED
     Route: 048
     Dates: start: 20231103, end: 20231105
  5. PALFORZIA [Suspect]
     Active Substance: PEANUT
     Dosage: 160 MG, 1X/DAY, DOSE INCRESED
     Route: 048
     Dates: start: 20231106

REACTIONS (3)
  - Hypersensitivity [Recovered/Resolved]
  - Pruritus [Recovered/Resolved]
  - Cough [Recovered/Resolved]

NARRATIVE: CASE EVENT DATE: 20231102
